FAERS Safety Report 10629375 (Version 2)
Quarter: 2014Q4

REPORT INFORMATION
  Report Type: Spontaneous
  Country: US (occurrence: US)
  Receive Date: 20141205
  Receipt Date: 20141205
  Transmission Date: 20150529
  Serious: No
  Sender: FDA-Public Use
  Company Number: US-BRISTOL-MYERS SQUIBB COMPANY-21195490

PATIENT
  Age: 62 Year
  Sex: Male

DRUGS (10)
  1. SPRYCEL [Suspect]
     Active Substance: DASATINIB
     Dosage: 50MG ON EVERY OTHER DAY.
     Route: 048
     Dates: start: 20120707, end: 20131012
  2. ATACAND [Concomitant]
     Active Substance: CANDESARTAN CILEXETIL
  3. GLUCOSAMINE [Concomitant]
     Active Substance: GLUCOSAMINE
  4. VICODIN [Concomitant]
     Active Substance: ACETAMINOPHEN\HYDROCODONE BITARTRATE
  5. VICODIN [Concomitant]
     Active Substance: ACETAMINOPHEN\HYDROCODONE BITARTRATE
  6. VITAMIN D [Concomitant]
     Active Substance: CHOLECALCIFEROL
  7. AMLODIPINE [Concomitant]
     Active Substance: AMLODIPINE BESYLATE
  8. NORVASC [Concomitant]
     Active Substance: AMLODIPINE BESYLATE
  9. MEDROL [Concomitant]
     Active Substance: METHYLPREDNISOLONE
  10. SYMBICORT [Concomitant]
     Active Substance: BUDESONIDE\FORMOTEROL FUMARATE DIHYDRATE

REACTIONS (1)
  - Pleural effusion [Recovered/Resolved]
